FAERS Safety Report 7811314-7 (Version None)
Quarter: 2011Q4

REPORT INFORMATION
  Report Type: 
  Country: None (occurrence: None)
  Receive Date: 20111011
  Receipt Date: 20110926
  Transmission Date: 20120403
  Serious: Yes (Hospitalization, Other)
  Sender: FDA-Public Use
  Company Number: VAL_00619_2011

PATIENT
  Age: 48 Year
  Sex: Male

DRUGS (2)
  1. CARBAMAZEPINE [Suspect]
     Indication: AFFECTIVE DISORDER
     Dosage: PROBABLY 150-200 TABLETS CONTAINING 400 MG EACH) ; (400 MG BID)
  2. CARBAMAZEPINE [Suspect]
     Indication: MENTAL DISORDER
     Dosage: PROBABLY 150-200 TABLETS CONTAINING 400 MG EACH) ; (400 MG BID)

REACTIONS (10)
  - RESPIRATORY FAILURE [None]
  - HYPOTONIA [None]
  - HAEMODIALYSIS [None]
  - TOXICITY TO VARIOUS AGENTS [None]
  - LOSS OF CONSCIOUSNESS [None]
  - HYPOREFLEXIA [None]
  - UNRESPONSIVE TO STIMULI [None]
  - PUPILLARY REFLEX IMPAIRED [None]
  - OVERDOSE [None]
  - HYPOPNOEA [None]
